FAERS Safety Report 14262528 (Version 1)
Quarter: 2017Q4

REPORT INFORMATION
  Report Type: Report from Study
  Country: US (occurrence: US)
  Receive Date: 20171208
  Receipt Date: 20171208
  Transmission Date: 20180321
  Serious: No
  Sender: FDA-Public Use
  Company Number: US-KYOWAKIRIN-2017BKK002675

PATIENT

DRUGS (2)
  1. GRANISETRON [Suspect]
     Active Substance: GRANISETRON
     Indication: PRODUCT USED FOR UNKNOWN INDICATION
     Dosage: 1 DF, 5TH DAY AFTER CHEMO
     Route: 062
  2. GRANISETRON [Suspect]
     Active Substance: GRANISETRON
     Dosage: 1 PATCH 5TH DAY AFTER CHEMOTHERAPY, REMOVE 5-7 DAYS LATER
     Route: 062
     Dates: start: 201709

REACTIONS (3)
  - Product adhesion issue [Unknown]
  - Inappropriate schedule of drug administration [None]
  - Drug prescribing error [Unknown]

NARRATIVE: CASE EVENT DATE: 20170922
